FAERS Safety Report 11547071 (Version 2)
Quarter: 2015Q3

REPORT INFORMATION
  Report Type: Spontaneous
  Country: GB (occurrence: GB)
  Receive Date: 20150924
  Receipt Date: 20150924
  Transmission Date: 20151125
  Serious: Yes (Other)
  Sender: FDA-Public Use
  Company Number: GB-BAYER-2015-423304

PATIENT
  Sex: Male

DRUGS (2)
  1. STIVARGA [Suspect]
     Active Substance: REGORAFENIB
     Indication: METASTATIC NEOPLASM
     Dosage: UNK
  2. STIVARGA [Suspect]
     Active Substance: REGORAFENIB
     Indication: METASTATIC NEOPLASM

REACTIONS (1)
  - Pancytopenia [Not Recovered/Not Resolved]
